FAERS Safety Report 9403064 (Version 3)
Quarter: 2013Q4

REPORT INFORMATION
  Report Type: Spontaneous
  Country: US (occurrence: US)
  Receive Date: 20130716
  Receipt Date: 20131220
  Transmission Date: 20140711
  Serious: Yes (Death, Hospitalization)
  Sender: FDA-Public Use
  Company Number: US-GLAXOSMITHKLINE-A1033310A

PATIENT
  Age: 56 Year
  Sex: Male
  Weight: 116.4 kg

DRUGS (1)
  1. AVANDIA [Suspect]
     Indication: DIABETES MELLITUS
     Route: 048
     Dates: start: 20000505, end: 20050831

REACTIONS (2)
  - Cardiac failure congestive [Fatal]
  - Coronary artery disease [Fatal]
